FAERS Safety Report 8565285-9 (Version None)
Quarter: 2012Q3

REPORT INFORMATION
  Report Type: 
  Country: None (occurrence: None)
  Receive Date: 20120803
  Receipt Date: 20120725
  Transmission Date: 20120928
  Serious: Yes (Hospitalization, Other)
  Sender: FDA-Public Use
  Company Number: US-009507513-2010SP038514

PATIENT

DRUGS (4)
  1. COUMADIN [Suspect]
     Indication: ANTICOAGULANT THERAPY
     Dates: start: 20080701, end: 20090123
  2. NUVARING [Suspect]
     Indication: DYSFUNCTIONAL UTERINE BLEEDING
  3. NUVARING [Suspect]
     Indication: MENSTRUAL CYCLE MANAGEMENT
     Dates: start: 20080627, end: 20080715
  4. COUMADIN [Suspect]
     Dates: start: 20090201

REACTIONS (15)
  - EMPHYSEMA [None]
  - LUNG DISORDER [None]
  - PULMONARY INFARCTION [None]
  - DEEP VEIN THROMBOSIS [None]
  - OFF LABEL USE [None]
  - HYPERCOAGULATION [None]
  - TRANSAMINASES INCREASED [None]
  - HYPERLIPIDAEMIA [None]
  - DRUG HYPERSENSITIVITY [None]
  - HYPERTENSION [None]
  - ANXIETY [None]
  - PULMONARY EMBOLISM [None]
  - METRORRHAGIA [None]
  - PAIN IN EXTREMITY [None]
  - PLEURISY [None]
